FAERS Safety Report 9940588 (Version 1)
Quarter: 2014Q1

REPORT INFORMATION
  Report Type: Other
  Country: IN (occurrence: IN)
  Receive Date: 20140303
  Receipt Date: 20140303
  Transmission Date: 20141002
  Serious: Yes (Other)
  Sender: FDA-Public Use
  Company Number: IN-BRISTOL-MYERS SQUIBB COMPANY-20349973

PATIENT
  Age: 52 Year
  Sex: Female

DRUGS (4)
  1. METFORMIN HCL [Suspect]
     Dosage: FOR LAST 7 YEARS-ONGOING
     Route: 048
  2. LEVOTHYROXINE [Suspect]
     Dosage: FOR LAST 10 YEARS-ONGOING
     Route: 048
  3. CALCIUM [Suspect]
     Dosage: FOR LAST 5 YEARS-ONGOING
     Route: 048
  4. ATENOLOL [Suspect]
     Indication: HYPERTENSION
     Dosage: FOR LAST 3 WEEKS-STOPPED
     Route: 048

REACTIONS (2)
  - Jaundice hepatocellular [Recovering/Resolving]
  - Hypertension [Recovered/Resolved]
